FAERS Safety Report 9175877 (Version 2)
Quarter: 2014Q1

REPORT INFORMATION
  Report Type: Report from Study
  Country: JP (occurrence: JP)
  Receive Date: 20130320
  Receipt Date: 20140324
  Transmission Date: 20141002
  Serious: Yes (Hospitalization)
  Sender: FDA-Public Use
  Company Number: JP-ACTELION-A-CH2013-77423

PATIENT
  Age: 38 Year
  Sex: Female
  Weight: 68.8 kg

DRUGS (15)
  1. TRACLEER [Suspect]
     Indication: PULMONARY ARTERIAL HYPERTENSION
     Dosage: 62.5 MG, BID
     Route: 048
     Dates: start: 20091005, end: 20100124
  2. TRACLEER [Suspect]
     Dosage: 93.75 MG, BID
     Route: 048
     Dates: start: 20100125, end: 20100301
  3. TRACLEER [Suspect]
     Dosage: 125 MG, BID
     Route: 048
     Dates: start: 20100302
  4. SILDENAFIL [Suspect]
     Dosage: 40 MG, QD
     Dates: start: 20100428, end: 20100511
  5. SILDENAFIL [Suspect]
     Dosage: 60 MG, QD
     Dates: start: 20100512, end: 20100526
  6. SILDENAFIL [Suspect]
     Dosage: 40 MG, QD
     Dates: start: 20100527, end: 20100622
  7. SILDENAFIL [Suspect]
     Dosage: 20 MG, QD
     Dates: start: 20100623, end: 20100810
  8. SILDENAFIL [Suspect]
     Dosage: 40 MG, QD
     Dates: start: 20100811, end: 20100824
  9. SILDENAFIL [Suspect]
     Dosage: 60 MG, QD
     Dates: start: 20100825
  10. CYCLOPHOSPHAMIDE [Suspect]
  11. PREDNISOLONE [Concomitant]
  12. FAMOTIDINE [Concomitant]
  13. ATORVASTATIN CALCIUM [Concomitant]
  14. EPINASTINE HYDROCHLORIDE [Concomitant]
  15. ALENDRONATE SODIUM [Concomitant]

REACTIONS (14)
  - Upper respiratory tract inflammation [Recovered/Resolved]
  - Pulmonary arterial hypertension [Recovering/Resolving]
  - Condition aggravated [Recovering/Resolving]
  - Pyrexia [Recovered/Resolved]
  - Sepsis [Recovered/Resolved]
  - White blood cell count decreased [Recovered/Resolved]
  - Meningitis aseptic [Recovered/Resolved]
  - Hepatic function abnormal [Recovered/Resolved]
  - Bronchitis [Recovered/Resolved]
  - Gastroenteritis [Recovered/Resolved]
  - Diarrhoea [Recovered/Resolved]
  - Influenza [Recovered/Resolved]
  - Aspartate aminotransferase increased [Recovered/Resolved]
  - Alanine aminotransferase increased [Recovered/Resolved]
